FAERS Safety Report 15620741 (Version 2)
Quarter: 2018Q4

REPORT INFORMATION
  Report Type: Report from Study
  Country: US (occurrence: US)
  Receive Date: 20181115
  Receipt Date: 20181127
  Transmission Date: 20190205
  Serious: Yes (Hospitalization)
  Sender: FDA-Public Use
  Company Number: US-EISAI MEDICAL RESEARCH-EC-2018-046532

PATIENT
  Sex: Male
  Weight: 82 kg

DRUGS (1)
  1. LENVIMA [Suspect]
     Active Substance: LENVATINIB
     Indication: HEPATIC CANCER
     Route: 048
     Dates: start: 201809, end: 201811

REACTIONS (9)
  - Diarrhoea [Unknown]
  - Vomiting [Unknown]
  - Ageusia [Not Recovered/Not Resolved]
  - Urticaria [Unknown]
  - Dehydration [Unknown]
  - Epistaxis [Not Recovered/Not Resolved]
  - Blood sodium increased [Unknown]
  - Blood sodium decreased [Recovered/Resolved]
  - Aphonia [Not Recovered/Not Resolved]

NARRATIVE: CASE EVENT DATE: 2018
